FAERS Safety Report 22270051 (Version 1)
Quarter: 2023Q2

REPORT INFORMATION
  Report Type: Spontaneous
  Country: US (occurrence: US)
  Receive Date: 20230501
  Receipt Date: 20230501
  Transmission Date: 20230721
  Serious: No
  Sender: FDA-Public Use
  Company Number: US-INCYTE CORPORATION-2023IN004212

PATIENT

DRUGS (2)
  1. JAKAFI [Suspect]
     Active Substance: RUXOLITINIB
     Indication: Polycythaemia vera
     Dosage: 15 MILLIGRAM, BID, TAKING 3 TABLETS (15 MG) IN MORNING AND 2 TABLETS (10 MG ) IN EVENING
     Route: 048
     Dates: start: 20220706
  2. JAKAFI [Suspect]
     Active Substance: RUXOLITINIB
     Dosage: 15 MILLIGRAM, BID, RAMPING UP TO 3 AND 3(DOSE INCREASED MARCH2023, PRESCRIBED AMOUNT IS 15 MG TWICE
     Route: 065
     Dates: start: 202303

REACTIONS (1)
  - Irritability [Unknown]
